FAERS Safety Report 23852768 (Version 1)
Quarter: 2024Q2

REPORT INFORMATION
  Report Type: Report from Study
  Country: GB (occurrence: GB)
  Receive Date: 20240514
  Receipt Date: 20240514
  Transmission Date: 20240716
  Serious: Yes (Hospitalization, Disabling)
  Sender: FDA-Public Use
  Company Number: GB-002147023-NVSC2024GB099203

PATIENT
  Sex: Male

DRUGS (1)
  1. MAYZENT [Suspect]
     Active Substance: SIPONIMOD
     Indication: Secondary progressive multiple sclerosis
     Dosage: 1 MG, QD
     Route: 048
     Dates: start: 20221216

REACTIONS (6)
  - Cerebrovascular accident [Unknown]
  - Monoparesis [Unknown]
  - Dysstasia [Unknown]
  - Urinary tract infection [Unknown]
  - Pyrexia [Unknown]
  - Chromaturia [Unknown]

NARRATIVE: CASE EVENT DATE: 20240101
